FAERS Safety Report 4575587-9 (Version None)
Quarter: 2005Q1

REPORT INFORMATION
  Report Type: 
  Country: None (occurrence: None)
  Receive Date: 20050128
  Receipt Date: 20050128
  Transmission Date: 20050727
  Serious: No
  Sender: FDA-Public Use
  Company Number: None

PATIENT

DRUGS (1)
  1. GREEN TEA  DIET PATCH [Suspect]

REACTIONS (5)
  - APPLICATION SITE EXCORIATION [None]
  - APPLICATION SITE HYPERSENSITIVITY [None]
  - APPLICATION SITE URTICARIA [None]
  - SKIN HAEMORRHAGE [None]
  - SKIN NECROSIS [None]
